FAERS Safety Report 13550913 (Version 3)
Quarter: 2017Q2

REPORT INFORMATION
  Report Type: Spontaneous
  Country: ID (occurrence: ID)
  Receive Date: 20170516
  Receipt Date: 20170602
  Transmission Date: 20170830
  Serious: Yes (Death, Hospitalization)
  Sender: FDA-Public Use
  Company Number: ID-B.I. PHARMACEUTICALS,INC./RIDGEFIELD-2017-BI-026938

PATIENT
  Age: 67 Year
  Sex: Female
  Weight: 28 kg

DRUGS (1)
  1. GILOTRIF [Suspect]
     Active Substance: AFATINIB
     Indication: LUNG ADENOCARCINOMA
     Route: 048
     Dates: start: 20170502

REACTIONS (5)
  - Diarrhoea [Unknown]
  - Respiratory failure [Fatal]
  - Off label use [Unknown]
  - Pneumonia [Unknown]
  - Sepsis [Unknown]
